FAERS Safety Report 5399546-1 (Version None)
Quarter: 2007Q3

REPORT INFORMATION
  Report Type: 
  Country: None (occurrence: None)
  Receive Date: 20070727
  Receipt Date: 20070724
  Transmission Date: 20080115
  Serious: Yes (Hospitalization)
  Sender: FDA-Public Use
  Company Number: US-GENENTECH-244303

PATIENT
  Age: 40 Year
  Sex: Male
  Weight: 115.65 kg

DRUGS (13)
  1. BEVACIZUMAB [Suspect]
     Indication: METASTATIC RENAL CELL CARCINOMA
     Dosage: 1220 MG, Q2W
     Route: 042
     Dates: start: 20070524
  2. PROLEUKIN [Suspect]
     Indication: METASTATIC RENAL CELL CARCINOMA
     Dosage: 54.96 MU, Q8H
     Route: 042
     Dates: start: 20070607
  3. PROLEUKIN [Suspect]
     Dosage: 53.2 MU, Q8H
     Route: 042
     Dates: start: 20070621
  4. LISINOPRIL [Concomitant]
     Indication: DRUG USE FOR UNKNOWN INDICATION
     Dosage: 10 MG, QD
     Route: 048
  5. PRILOSEC [Concomitant]
     Indication: DRUG USE FOR UNKNOWN INDICATION
     Dosage: 20 MG, QDX2
     Route: 048
  6. NEPHROCAPS [Concomitant]
     Indication: DRUG USE FOR UNKNOWN INDICATION
     Dosage: 1 UNK, QD
     Route: 048
  7. ATIVAN [Concomitant]
     Indication: DRUG USE FOR UNKNOWN INDICATION
     Dosage: 1 MG, QHS
     Route: 048
  8. XALATAN [Concomitant]
     Indication: DRUG USE FOR UNKNOWN INDICATION
     Dosage: 1 GTT, QHS
     Route: 047
  9. CLARITIN [Concomitant]
     Indication: DRUG USE FOR UNKNOWN INDICATION
     Dosage: 10 MG, QD
     Route: 048
  10. FAMOTIDINE [Concomitant]
     Indication: DRUG USE FOR UNKNOWN INDICATION
     Dosage: 20 MG, BID
     Route: 048
  11. IMODIUM [Concomitant]
     Indication: DRUG USE FOR UNKNOWN INDICATION
     Dosage: 2 MG, PRN
     Route: 048
  12. BENADRYL [Concomitant]
     Indication: DRUG USE FOR UNKNOWN INDICATION
     Dosage: 25 MG, PRN
     Route: 048
  13. BENADRYL [Concomitant]
     Dosage: 50 MG, PRN
     Route: 049

REACTIONS (1)
  - RENAL FAILURE ACUTE [None]
